FAERS Safety Report 7343385-9 (Version None)
Quarter: 2011Q1

REPORT INFORMATION
  Report Type: 
  Country: None (occurrence: None)
  Receive Date: 20110310
  Receipt Date: 20110228
  Transmission Date: 20110831
  Serious: Yes (Other)
  Sender: FDA-Public Use
  Company Number: PHHY2010BR63477

PATIENT
  Sex: Male
  Weight: 80 kg

DRUGS (11)
  1. FOLIC ACID [Concomitant]
     Indication: ANAEMIA
     Dosage: 1 DF, QD
     Route: 048
     Dates: start: 20080101
  2. FORASEQ [Suspect]
     Dosage: 12/400 MCG, QD
  3. GLIMEPIRIDE [Concomitant]
     Dosage: 1 DF, QD
     Dates: start: 20070101
  4. LIPITOR [Concomitant]
     Indication: BLOOD CHOLESTEROL
     Dosage: 1 DF, QD
     Dates: start: 20080101
  5. LOSARTAN POTASSIUM [Concomitant]
     Indication: HYPERTENSION
     Dosage: 1 DF, QD
     Dates: start: 20070101
  6. IRON POLYMALTOSE [Concomitant]
     Indication: ANAEMIA
     Dosage: UNK
     Route: 048
     Dates: start: 20080101
  7. CILOSTAZOL [Concomitant]
     Dosage: 1 DF, BID
     Route: 048
     Dates: start: 20080101
  8. FORASEQ [Suspect]
     Dosage: 1 DF, BID
  9. METFORMIN [Concomitant]
     Indication: DIABETES MELLITUS
     Dosage: 1 DF, TID
     Route: 048
     Dates: start: 20070101
  10. PREDNISONE TAB [Concomitant]
     Indication: ASTHMA
     Dosage: 1 DF, QD
     Route: 048
     Dates: start: 20070101
  11. PANTOPRAZOLE [Concomitant]
     Indication: GASTRIC DISORDER
     Dosage: 1 DF, QD IN EMPTY STOMACH
     Route: 048
     Dates: start: 20080101

REACTIONS (13)
  - OSTEOARTHRITIS [None]
  - HYPOTONIA [None]
  - DUODENAL ULCER [None]
  - NASOPHARYNGITIS [None]
  - APHASIA [None]
  - BLOOD GLUCOSE INCREASED [None]
  - PAIN IN EXTREMITY [None]
  - HYPERTENSION [None]
  - DEVICE MALFUNCTION [None]
  - SENSORY LOSS [None]
  - WHEELCHAIR USER [None]
  - SOMNOLENCE [None]
  - CEREBROVASCULAR ACCIDENT [None]
